FAERS Safety Report 16164745 (Version 2)
Quarter: 2019Q2

REPORT INFORMATION
  Report Type: Spontaneous
  Country: OM (occurrence: OM)
  Receive Date: 20190405
  Receipt Date: 20190501
  Transmission Date: 20190711
  Serious: Yes (Other)
  Sender: FDA-Public Use
  Company Number: OM-INCYTE CORPORATION-2019IN003346

PATIENT

DRUGS (1)
  1. JAKAVI [Suspect]
     Active Substance: RUXOLITINIB
     Indication: POLYCYTHAEMIA VERA
     Dosage: 20 MG, UNK
     Route: 048

REACTIONS (9)
  - Vomiting [Not Recovered/Not Resolved]
  - Leukocytosis [Unknown]
  - Vision blurred [Not Recovered/Not Resolved]
  - Blood count abnormal [Unknown]
  - Platelet count increased [Unknown]
  - Headache [Not Recovered/Not Resolved]
  - White blood cell count increased [Unknown]
  - Hyperviscosity syndrome [Not Recovered/Not Resolved]
  - Drug resistance [Unknown]
